FAERS Safety Report 7924385-4 (Version None)
Quarter: 2011Q4

REPORT INFORMATION
  Report Type: 
  Country: None (occurrence: None)
  Receive Date: 20111117
  Receipt Date: 20111014
  Transmission Date: 20120403
  Serious: Yes (Hospitalization, Other)
  Sender: FDA-Public Use
  Company Number: PHEH2011US009519

PATIENT
  Age: 18 Year
  Sex: Female
  Weight: 53.515 kg

DRUGS (1)
  1. TOBI [Suspect]
     Dosage: 300 MG, BID,
     Dates: start: 20110407, end: 20110601

REACTIONS (1)
  - UPPER RESPIRATORY TRACT INFECTION [None]
